FAERS Safety Report 17615404 (Version 1)
Quarter: 2020Q2

REPORT INFORMATION
  Report Type: Spontaneous
  Country: DE (occurrence: DE)
  Receive Date: 20200402
  Receipt Date: 20200402
  Transmission Date: 20200713
  Serious: Yes (Other)
  Sender: FDA-Public Use
  Company Number: DE-PFIZER INC-2020136414

PATIENT
  Sex: Male

DRUGS (10)
  1. TOPIRAMATE. [Concomitant]
     Active Substance: TOPIRAMATE
     Dosage: UNK
  2. LAMOTRIGINE. [Concomitant]
     Active Substance: LAMOTRIGINE
     Dosage: UNK
  3. VALPROATE [Concomitant]
     Active Substance: VALPROIC ACID
     Dosage: 1200 MG, DAILY
  4. VALPROATE [Concomitant]
     Active Substance: VALPROIC ACID
     Dosage: 300 MG, UNK
     Dates: end: 201909
  5. LACOSAMIDE. [Suspect]
     Active Substance: LACOSAMIDE
     Dosage: 500 MG, DAILY
     Route: 042
  6. LEVETIRACETAM. [Suspect]
     Active Substance: LEVETIRACETAM
     Dosage: 3000 MILLIGRAM, ONCE DAILY (QD)
     Route: 042
  7. CLONAZEPAM. [Concomitant]
     Active Substance: CLONAZEPAM
     Dosage: 1 MG, UNK
  8. LACOSAMIDE. [Suspect]
     Active Substance: LACOSAMIDE
     Dosage: 400 MG, DAILY
     Dates: start: 201901
  9. PERAMPANEL [Concomitant]
     Active Substance: PERAMPANEL
  10. CLONAZEPAM. [Concomitant]
     Active Substance: CLONAZEPAM
     Dosage: 0.5 MG, UNK
     Dates: start: 201901

REACTIONS (9)
  - Drug ineffective [Unknown]
  - Status epilepticus [Recovered/Resolved]
  - Generalised tonic-clonic seizure [Recovered/Resolved]
  - Multiple-drug resistance [Unknown]
  - Overdose [Unknown]
  - Fall [Recovered/Resolved]
  - Off label use [Unknown]
  - Clonic convulsion [Recovered/Resolved]
  - Femur fracture [Recovered/Resolved]
